FAERS Safety Report 13164036 (Version 13)
Quarter: 2018Q3

REPORT INFORMATION
  Report Type: Spontaneous
  Country: GB (occurrence: GB)
  Receive Date: 20170130
  Receipt Date: 20180924
  Transmission Date: 20181010
  Serious: Yes (Life-Threatening, Hospitalization, Other)
  Sender: FDA-Public Use
  Company Number: GB-PFIZER INC-2017031607

PATIENT
  Age: 70 Year
  Sex: Female

DRUGS (9)
  1. FENTANYL. [Suspect]
     Active Substance: FENTANYL
     Dosage: 1400 UG, SINGLE (100 UG X 14 TRANSDERMAL PATCHES)
     Route: 062
     Dates: start: 201407, end: 201407
  2. ORAMORPH [Concomitant]
     Active Substance: MORPHINE SULFATE
     Indication: BREAST CONSERVING SURGERY
     Dosage: 20 ML, DAILY
     Route: 048
  3. MIRTAZAPINE. [Concomitant]
     Active Substance: MIRTAZAPINE
     Dosage: 15 MG, DAILY
  4. TRAMADOL. [Concomitant]
     Active Substance: TRAMADOL
     Dosage: UNK
  5. ORAMORPH [Concomitant]
     Active Substance: MORPHINE SULFATE
     Indication: BIOPSY LYMPH GLAND
  6. FENTANYL. [Suspect]
     Active Substance: FENTANYL
     Indication: BACK PAIN
     Dosage: 100 UG, UNK
     Route: 062
  7. FENTANYL. [Suspect]
     Active Substance: FENTANYL
     Dosage: 150 UG, UNK (EXTRA 50 UG FENTANYL TO TAKE IN ADDITION TO HER 100 UG)
     Route: 062
     Dates: start: 201012
  8. FENTANYL. [Suspect]
     Active Substance: FENTANYL
     Dosage: 100 UG, DAILY
     Route: 062
  9. MIRTAZAPINE. [Concomitant]
     Active Substance: MIRTAZAPINE
     Dosage: 90 MG, SINGLE (TWO 45 MG TABLETS)

REACTIONS (3)
  - Suicide attempt [Recovered/Resolved]
  - Intentional overdose [Unknown]
  - Hypersomnia [Recovered/Resolved]

NARRATIVE: CASE EVENT DATE: 201407
